FAERS Safety Report 14281244 (Version 1)
Quarter: 2017Q4

REPORT INFORMATION
  Report Type: Spontaneous
  Country: US (occurrence: None)
  Receive Date: 20171213
  Receipt Date: 20171213
  Transmission Date: 20180321
  Serious: Yes (Hospitalization)
  Sender: FDA-Public Use
  Company Number: None

PATIENT
  Age: 82 Year
  Sex: Female
  Weight: 67.13 kg

DRUGS (3)
  1. CARTIA XT [Suspect]
     Active Substance: DILTIAZEM HYDROCHLORIDE
     Indication: HYPERTENSION
     Route: 048
     Dates: start: 20170930, end: 20171005
  2. PACEMAKER [Concomitant]
  3. WARFARIN [Concomitant]
     Active Substance: WARFARIN

REACTIONS (10)
  - Oral pain [None]
  - Reaction to colouring [None]
  - Product use complaint [None]
  - Asthenia [None]
  - Tremor [None]
  - Hypoaesthesia oral [None]
  - Device breakage [None]
  - Palatal swelling [None]
  - Blood pressure increased [None]
  - Tooth disorder [None]

NARRATIVE: CASE EVENT DATE: 20171006
